FAERS Safety Report 17704985 (Version 11)
Quarter: 2020Q4

REPORT INFORMATION
  Report Type: Spontaneous
  Country: US (occurrence: US)
  Receive Date: 20200424
  Receipt Date: 20201230
  Transmission Date: 20210113
  Serious: Yes (Other)
  Sender: FDA-Public Use
  Company Number: US-GLAXOSMITHKLINE-US2020AMR069254

PATIENT
  Age: 58 Year
  Sex: Female

DRUGS (9)
  1. FLOLAN DILUENT PH 12 [Suspect]
     Active Substance: GLYCINE\MANNITOL\SODIUM CHLORIDE
     Dosage: UNK
     Route: 042
     Dates: start: 20180530
  2. FLOLAN DILUENT PH 12 [Suspect]
     Active Substance: GLYCINE\MANNITOL\SODIUM CHLORIDE
     Indication: PULMONARY ARTERIAL HYPERTENSION
     Dosage: UNK
     Route: 042
     Dates: start: 20180530
  3. FLOLAN [Suspect]
     Active Substance: EPOPROSTENOL SODIUM
     Indication: PULMONARY ARTERIAL HYPERTENSION
     Dosage: 79.5 NG/KG/MIN, CO
     Route: 042
     Dates: start: 20060725
  4. FLOLAN [Suspect]
     Active Substance: EPOPROSTENOL SODIUM
     Indication: PULMONARY ARTERIAL HYPERTENSION
     Dosage: 85.3 NG/KG/MIN, CO
     Route: 065
     Dates: start: 20060725
  5. FLOLAN [Suspect]
     Active Substance: EPOPROSTENOL SODIUM
     Indication: PULMONARY ARTERIAL HYPERTENSION
     Dosage: 85.3 NG/KG/MIN, CO
     Route: 042
     Dates: start: 20060725
  6. FLOLAN [Suspect]
     Active Substance: EPOPROSTENOL SODIUM
     Indication: PULMONARY ARTERIAL HYPERTENSION
     Dosage: 85.3 NG/KG/MIN, CO
     Route: 065
     Dates: start: 20060725
  7. FLOLAN DILUENT PH 12 [Suspect]
     Active Substance: GLYCINE\MANNITOL\SODIUM CHLORIDE
     Dosage: UNK
     Route: 065
     Dates: start: 20180530
  8. FLOLAN DILUENT PH 12 [Suspect]
     Active Substance: GLYCINE\MANNITOL\SODIUM CHLORIDE
     Dosage: UNK
     Route: 065
     Dates: start: 20180530
  9. FLOLAN DILUENT PH 12 [Suspect]
     Active Substance: GLYCINE\MANNITOL\SODIUM CHLORIDE
     Dosage: UNK
     Route: 065

REACTIONS (26)
  - Abnormal behaviour [Recovered/Resolved]
  - Haemorrhage [Unknown]
  - Depression [Unknown]
  - Dyspnoea [Unknown]
  - Stress [Unknown]
  - Fatigue [Unknown]
  - Anxiety [Unknown]
  - Mental disorder [Unknown]
  - Candida infection [Not Recovered/Not Resolved]
  - Ill-defined disorder [Recovered/Resolved]
  - Hypotension [Unknown]
  - Brain natriuretic peptide increased [Unknown]
  - Agitation [Unknown]
  - Electrolyte imbalance [Unknown]
  - Pyrexia [Unknown]
  - Complication associated with device [Unknown]
  - Weight decreased [Recovered/Resolved]
  - Diarrhoea [Recovering/Resolving]
  - Asthenia [Unknown]
  - Gastrointestinal disorder [Unknown]
  - Haemorrhoids [Unknown]
  - Device malfunction [Unknown]
  - Back pain [Unknown]
  - Nausea [Recovering/Resolving]
  - Catheter site infection [Recovered/Resolved]
  - General physical health deterioration [Unknown]

NARRATIVE: CASE EVENT DATE: 202003
